FAERS Safety Report 14330068 (Version 1)
Quarter: 2017Q4

REPORT INFORMATION
  Report Type: Spontaneous
  Country: IT (occurrence: IT)
  Receive Date: 20171227
  Receipt Date: 20171227
  Transmission Date: 20180321
  Serious: Yes (Hospitalization, Disabling)
  Sender: FDA-Public Use
  Company Number: IT-MYLANLABS-2017M1082174

PATIENT
  Age: 63 Year
  Sex: Female

DRUGS (2)
  1. METHOTREXATE. [Suspect]
     Active Substance: METHOTREXATE
     Dosage: 10 MG, QW
     Dates: start: 2014
  2. METHOTREXATE. [Suspect]
     Active Substance: METHOTREXATE
     Indication: ARTHRITIS
     Dosage: 15 MG, QW

REACTIONS (20)
  - Vomiting [Recovered/Resolved]
  - C-reactive protein increased [Recovered/Resolved]
  - Whipple^s disease [Recovering/Resolving]
  - Arthralgia [Recovered/Resolved]
  - Bacterial infection [Recovering/Resolving]
  - Red blood cell sedimentation rate increased [Recovered/Resolved]
  - Disability [Unknown]
  - Diarrhoea [Recovered/Resolved]
  - Pyrexia [Recovered/Resolved]
  - Hypoalbuminaemia [Recovered/Resolved]
  - Oedema mucosal [Recovering/Resolving]
  - Ulcer [Recovering/Resolving]
  - Hyperaemia [Recovering/Resolving]
  - Anaemia [Recovered/Resolved]
  - Weight decreased [Recovered/Resolved]
  - Iron deficiency [Recovered/Resolved]
  - Intestinal villi atrophy [Recovering/Resolving]
  - Condition aggravated [Recovering/Resolving]
  - Intestinal intraepithelial lymphocytes increased [Recovered/Resolved]
  - Lymphangiectasia intestinal [Recovered/Resolved]

NARRATIVE: CASE EVENT DATE: 2015
